FAERS Safety Report 7002941-8 (Version None)
Quarter: 2010Q3

REPORT INFORMATION
  Report Type: 
  Country: None (occurrence: None)
  Receive Date: 20100920
  Receipt Date: 20070530
  Transmission Date: 20110219
  Serious: Yes (Other)
  Sender: FDA-Public Use
  Company Number: US-ASTRAZENECA-2006UW12234

PATIENT
  Age: 14974 Day
  Sex: Male
  Weight: 130.2 kg

DRUGS (14)
  1. SEROQUEL [Suspect]
     Route: 048
     Dates: start: 20031203
  2. SEROQUEL [Suspect]
     Route: 048
  3. ZYPREXA [Suspect]
  4. RISPERDAL [Suspect]
  5. GEODON [Concomitant]
     Route: 048
     Dates: start: 20031203
  6. LITHOBID [Concomitant]
     Dates: start: 20041002
  7. BENICAR [Concomitant]
     Dates: start: 20041002
  8. LISINOPRIL [Concomitant]
     Dates: start: 20070320
  9. LIPITOR [Concomitant]
     Dosage: STRENGTH -  10
     Dates: start: 20050907
  10. PAXIL [Concomitant]
     Dosage: STRENGTH - 12.5 - 80 MG DAILY
     Route: 048
     Dates: start: 20031203
  11. PREVACID [Concomitant]
     Dosage: STRENGTH - 30
     Dates: start: 20050907
  12. TOPAMAX [Concomitant]
     Route: 048
     Dates: start: 20070320
  13. LICON [Concomitant]
     Route: 048
     Dates: start: 20031203
  14. NEURONTIN [Concomitant]
     Dates: start: 20031203

REACTIONS (3)
  - DIABETES MELLITUS [None]
  - HYPERGLYCAEMIA [None]
  - PANCREATITIS [None]
